FAERS Safety Report 5483100-7 (Version None)
Quarter: 2007Q4

REPORT INFORMATION
  Report Type: 
  Country: None (occurrence: None)
  Receive Date: 20071009
  Receipt Date: 20070924
  Transmission Date: 20080405
  Serious: Yes (Hospitalization)
  Sender: FDA-Public Use
  Company Number: 2007BI019154

PATIENT
  Age: 57 Year
  Sex: Male

DRUGS (2)
  1. AVONEX [Suspect]
     Indication: MULTIPLE SCLEROSIS
     Dosage: 30 UG; QW; IM
     Route: 030
     Dates: start: 19990101, end: 20060101
  2. AVONEX [Suspect]
     Indication: MULTIPLE SCLEROSIS
     Dosage: IM
     Route: 030
     Dates: start: 20070701

REACTIONS (7)
  - ARTHRITIS [None]
  - ARTHRITIS INFECTIVE [None]
  - ASTHENIA [None]
  - BURSITIS [None]
  - FALL [None]
  - JOINT INJURY [None]
  - STAPHYLOCOCCAL INFECTION [None]
